FAERS Safety Report 4960150-8 (Version None)
Quarter: 2006Q1

REPORT INFORMATION
  Report Type: 
  Country: None (occurrence: None)
  Receive Date: 20060331
  Receipt Date: 20060201
  Transmission Date: 20060701
  Serious: Yes (Hospitalization)
  Sender: FDA-Public Use
  Company Number: DK-ABBOTT-06P-044-0323972-00

PATIENT
  Sex: Female
  Weight: 88 kg

DRUGS (3)
  1. REDUCTIL 10MG [Suspect]
     Indication: OBESITY
     Route: 048
     Dates: start: 20060128
  2. REDUCTIL 10MG [Suspect]
     Dates: start: 20051001
  3. MODURETIC 5-50 [Concomitant]
     Indication: OEDEMA PERIPHERAL
     Route: 048

REACTIONS (5)
  - DRUG INEFFECTIVE [None]
  - INCREASED APPETITE [None]
  - NERVOUSNESS [None]
  - SLEEP DISORDER [None]
  - SMEAR CERVIX [None]
